FAERS Safety Report 7160072-0 (Version None)
Quarter: 2010Q4

REPORT INFORMATION
  Report Type: 
  Country: None (occurrence: None)
  Receive Date: 20101214
  Receipt Date: 20101209
  Transmission Date: 20110411
  Serious: Yes (Life-Threatening, Hospitalization)
  Sender: FDA-Public Use
  Company Number: US-GILEAD-2010-0034271

PATIENT
  Sex: Male

DRUGS (4)
  1. TRUVADA [Suspect]
     Indication: HIV INFECTION
  2. RITONAVIR [Suspect]
     Indication: HIV INFECTION
  3. ATAZANAVIR SULFATE [Suspect]
     Indication: HIV INFECTION
  4. TYLENOL EXTRA STRENGTH [Concomitant]
     Indication: NASOPHARYNGITIS
     Dates: start: 20101203

REACTIONS (1)
  - CHEST PAIN [None]
